FAERS Safety Report 8607883-X (Version None)
Quarter: 2012Q3

REPORT INFORMATION
  Report Type: 
  Country: None (occurrence: None)
  Receive Date: 20120821
  Receipt Date: 20120813
  Transmission Date: 20120928
  Serious: Yes (Hospitalization)
  Sender: FDA-Public Use
  Company Number: CA-B.I. PHARMACEUTICALS,INC./RIDGEFIELD-2012-CN-01646CN

PATIENT
  Age: 73 Year
  Sex: Female

DRUGS (7)
  1. CRESTOR [Concomitant]
  2. VERAPAMIL [Concomitant]
  3. INDAPAMIDE [Concomitant]
  4. METFORMIN HCL [Concomitant]
  5. PRADAXA [Suspect]
     Indication: ATRIAL FIBRILLATION
     Dosage: 220 MG
     Dates: start: 20120419, end: 20120731
  6. ASPIRIN [Concomitant]
  7. DIOVAN [Concomitant]

REACTIONS (4)
  - HAEMATOCHEZIA [None]
  - PALLOR [None]
  - ANAEMIA [None]
  - FATIGUE [None]
